FAERS Safety Report 19798519 (Version 2)
Quarter: 2021Q3

REPORT INFORMATION
  Report Type: Spontaneous
  Country: JP (occurrence: JP)
  Receive Date: 20210907
  Receipt Date: 20210922
  Transmission Date: 20211014
  Serious: Yes (Other)
  Sender: FDA-Public Use
  Company Number: JP-PFIZER INC-202101091493

PATIENT
  Sex: Male

DRUGS (1)
  1. ZITHROMAC [Suspect]
     Active Substance: AZITHROMYCIN DIHYDRATE
     Dosage: UNK
     Route: 048

REACTIONS (7)
  - Drug hypersensitivity [Unknown]
  - Vertigo [Unknown]
  - Fall [Unknown]
  - Reaction to excipient [Unknown]
  - Dizziness [Unknown]
  - Balance disorder [Unknown]
  - Colour blindness [Unknown]
